FAERS Safety Report 9271714 (Version 1)
Quarter: 2013Q2

REPORT INFORMATION
  Report Type: Spontaneous
  Country: US (occurrence: US)
  Receive Date: 20130506
  Receipt Date: 20130506
  Transmission Date: 20140414
  Serious: Yes (Other)
  Sender: FDA-Public Use
  Company Number: US-COVIDIEN/TYCO HEALTHCARE/MALLINCKRODT-T201204632

PATIENT
  Age: 22 Year
  Sex: Male
  Weight: 56.4 kg

DRUGS (2)
  1. HYDROCODONE/ACETAMINOPHEN [Suspect]
     Dosage: 40 TABLETS/PILLS/CAPSULES
  2. FENTANYL [Suspect]
     Dosage: UNK

REACTIONS (1)
  - Drug abuse [Unknown]
